FAERS Safety Report 21714242 (Version 5)
Quarter: 2023Q1

REPORT INFORMATION
  Report Type: Spontaneous
  Country: CA (occurrence: CA)
  Receive Date: 20221212
  Receipt Date: 20230307
  Transmission Date: 20230417
  Serious: Yes (Other)
  Sender: FDA-Public Use
  Company Number: CA-PFIZER INC-PV202200106986

PATIENT
  Age: 83 Year
  Sex: Female
  Weight: 72.5 kg

DRUGS (9)
  1. RUXIENCE [Suspect]
     Active Substance: RITUXIMAB-PVVR
     Indication: Acquired haemophilia
     Dosage: FOR CYCLE 1 50ML X 30 MIN THEN INCREASE BY 50 ML EVERY 30 MIN FOR MAX OF 400ML
  2. RUXIENCE [Suspect]
     Active Substance: RITUXIMAB-PVVR
     Indication: Acquired factor VIII deficiency
     Dosage: FOR CYCLE 2 200ML X30 MIN THEN 400ML
  3. RUXIENCE [Suspect]
     Active Substance: RITUXIMAB-PVVR
     Dosage: 375 MG/M2
  4. ACETAMINOPHEN [Concomitant]
     Active Substance: ACETAMINOPHEN
     Dosage: UNK
  5. CYCLOPHOSPHAMIDE [Concomitant]
     Active Substance: CYCLOPHOSPHAMIDE
     Indication: Immunosuppression
     Dosage: 150 MG, DAILY
     Dates: start: 20220904
  6. CYCLOPHOSPHAMIDE [Concomitant]
     Active Substance: CYCLOPHOSPHAMIDE
     Dosage: 1.5 MG/KG, DAILY
     Dates: start: 202209, end: 20221125
  7. OBIZUR [Concomitant]
     Active Substance: ANTIHEMOPHILIC FACTOR PORCINE, B-DOMAIN TRUNCATED RECOMBINANT
     Indication: Haemostasis
     Dosage: UNK
  8. PREDNISONE [Concomitant]
     Active Substance: PREDNISONE
     Dosage: 1 MG/KG, DAILY (70 MG)
     Route: 048
     Dates: start: 202209, end: 20221125
  9. PREDNISONE [Concomitant]
     Active Substance: PREDNISONE
     Dosage: UNK, TAPER ON DISCHARGE
     Dates: start: 20220917

REACTIONS (12)
  - Pleural effusion [Unknown]
  - Barrett^s oesophagus [Unknown]
  - Retroperitoneal haematoma [Unknown]
  - Hiatus hernia [Unknown]
  - Atelectasis [Unknown]
  - Biliary dilatation [Unknown]
  - Abdominal pain [Unknown]
  - Nausea [Unknown]
  - Decreased appetite [Unknown]
  - Bronchial wall thickening [Unknown]
  - Respiratory tract infection [Unknown]
  - Off label use [Unknown]
